FAERS Safety Report 16826779 (Version 1)
Quarter: 2019Q3

REPORT INFORMATION
  Report Type: Spontaneous
  Country: US (occurrence: US)
  Receive Date: 20190919
  Receipt Date: 20190919
  Transmission Date: 20191005
  Serious: No
  Sender: FDA-Public Use
  Company Number: US-MYLANLABS-2019M1084253

PATIENT
  Age: 84 Year
  Sex: Female

DRUGS (1)
  1. CHLORTALIDONE [Suspect]
     Active Substance: CHLORTHALIDONE
     Indication: PRODUCT USED FOR UNKNOWN INDICATION
     Dosage: UNK

REACTIONS (1)
  - Nausea [Unknown]
